FAERS Safety Report 6423823-6 (Version None)
Quarter: 2009Q4

REPORT INFORMATION
  Report Type: 
  Country: None (occurrence: None)
  Receive Date: 20091102
  Receipt Date: 20091021
  Transmission Date: 20100525
  Serious: Yes (Hospitalization)
  Sender: FDA-Public Use
  Company Number: JP-PFIZER INC-2009237580

PATIENT
  Age: 70 Year
  Sex: Male
  Weight: 90.2 kg

DRUGS (18)
  1. PREGABALIN [Suspect]
     Indication: DIABETIC NEUROPATHY
     Dosage: 300 MG, 2X/DAY
     Route: 048
     Dates: start: 20081212, end: 20090710
  2. PREGABALIN [Suspect]
     Dosage: 75 MG, 2X/DAY
     Route: 048
     Dates: start: 20081014, end: 20081027
  3. PREGABALIN [Suspect]
     Dosage: 150 MG, 2X/DAY
     Route: 048
     Dates: start: 20081027, end: 20081114
  4. PREGABALIN [Suspect]
     Dosage: 225 MG, 2X/DAY
     Route: 048
     Dates: start: 20081114, end: 20081212
  5. PREGABALIN [Suspect]
     Dosage: 225 MG, 2X/DAY
     Route: 048
     Dates: start: 20090710, end: 20090712
  6. PREGABALIN [Suspect]
     Dosage: 150 MG, 2X/DAY
     Route: 048
     Dates: start: 20090712, end: 20090714
  7. PREGABALIN [Suspect]
     Dosage: 75 MG, 2X/DAY
     Dates: start: 20090714, end: 20090716
  8. NOVORAPID [Concomitant]
     Dosage: UNK
     Route: 058
     Dates: start: 20080606
  9. BLOPRESS [Concomitant]
     Dosage: UNK
     Route: 048
     Dates: start: 20080606
  10. SHAKUYAKU-KANZO-TO [Concomitant]
     Dosage: UNK
     Route: 048
     Dates: start: 20090206
  11. NITROGLYCERIN [Concomitant]
     Dosage: UNK
     Route: 060
     Dates: start: 20090206
  12. LOXONIN [Concomitant]
     Dosage: UNK
     Route: 048
     Dates: start: 20090612
  13. MUCOSTA [Concomitant]
     Dosage: UNK
     Route: 048
     Dates: start: 20090514
  14. KARY UNI [Concomitant]
     Dosage: UNK
     Route: 047
     Dates: start: 20081114
  15. EMPYNASE [Concomitant]
     Dosage: UNK
     Route: 048
     Dates: start: 20090622
  16. LIDOCAINE HYDROCHLORIDE [Concomitant]
     Dosage: UNK
     Dates: start: 20090625, end: 20090625
  17. LIDOCAINE HYDROCHLORIDE [Concomitant]
     Dates: start: 20090629, end: 20090629
  18. DECADRON [Concomitant]
     Dates: start: 20090629, end: 20090629

REACTIONS (1)
  - OSTEONECROSIS [None]
